FAERS Safety Report 4365515-3 (Version None)
Quarter: 2004Q2

REPORT INFORMATION
  Report Type: 
  Country: None (occurrence: None)
  Receive Date: 20040526
  Receipt Date: 20040413
  Transmission Date: 20050107
  Serious: Yes (Other)
  Sender: FDA-Public Use
  Company Number: US-GLAXOSMITHKLINE-A0506925A

PATIENT
  Age: 48 Year
  Sex: Male
  Weight: 88.2 kg

DRUGS (1)
  1. BUPROPION HCL [Suspect]
     Indication: DEPRESSION
     Dosage: 75MG SEE DOSAGE TEXT
     Route: 048
     Dates: start: 20040101, end: 20040301

REACTIONS (4)
  - EYE HAEMORRHAGE [None]
  - RETINAL HAEMORRHAGE [None]
  - VISION BLURRED [None]
  - VITREOUS FLOATERS [None]
